FAERS Safety Report 20568864 (Version 1)
Quarter: 2022Q1

REPORT INFORMATION
  Report Type: Spontaneous
  Country: US (occurrence: US)
  Receive Date: 20220308
  Receipt Date: 20220308
  Transmission Date: 20220423
  Serious: Yes (Other)
  Sender: FDA-Public Use
  Company Number: US-GILEAD-2022-0572591

PATIENT
  Age: 81 Year
  Sex: Male
  Weight: 82.7 kg

DRUGS (1)
  1. YESCARTA [Suspect]
     Active Substance: AXICABTAGENE CILOLEUCEL
     Indication: Follicular lymphoma
     Dosage: UNK
     Route: 042
     Dates: start: 20220117

REACTIONS (8)
  - Immune effector cell-associated neurotoxicity syndrome [Unknown]
  - Cytokine release syndrome [Recovered/Resolved]
  - Fatigue [Unknown]
  - Myalgia [Unknown]
  - Alanine aminotransferase increased [Unknown]
  - Aspartate aminotransferase increased [Unknown]
  - Rash [Unknown]
  - Hypoalbuminaemia [Unknown]

NARRATIVE: CASE EVENT DATE: 20220118
